FAERS Safety Report 10948663 (Version 1)
Quarter: 2015Q1

REPORT INFORMATION
  Report Type: Spontaneous
  Country: US (occurrence: None)
  Receive Date: 20150323
  Receipt Date: 20150323
  Transmission Date: 20150721
  Serious: No
  Sender: FDA-Public Use
  Company Number: None

PATIENT
  Sex: Female
  Weight: 46.72 kg

DRUGS (9)
  1. AMLODIYSINE BESYLATE [Concomitant]
  2. MYCOBUTIN [Suspect]
     Active Substance: RIFABUTIN
     Indication: DRUG PRESCRIBING ERROR
     Dosage: 150 MG, 2 PILLS, 2 CAPSULES BY MOUTH ?3 TIMES A WEEK
     Route: 048
  3. AZITHROMYCIN [Concomitant]
     Active Substance: AZITHROMYCIN ANHYDROUS
  4. LOSARTAN [Concomitant]
     Active Substance: LOSARTAN
  5. ETHAMBUTOL HCL [Concomitant]
     Active Substance: ETHAMBUTOL HYDROCHLORIDE
  6. IBUPUROFEN [Concomitant]
  7. LEVOTHYROXINE [Concomitant]
     Active Substance: LEVOTHYROXINE
  8. ALLOPHURINOL [Concomitant]
  9. SINVASTATIN [Concomitant]
     Active Substance: SIMVASTATIN

REACTIONS (2)
  - Wrong drug administered [None]
  - Skin discolouration [None]
